FAERS Safety Report 23606160 (Version 1)
Quarter: 2024Q1

REPORT INFORMATION
  Report Type: Spontaneous
  Country: US (occurrence: US)
  Receive Date: 20240307
  Receipt Date: 20240307
  Transmission Date: 20240409
  Serious: No
  Sender: FDA-Public Use
  Company Number: US-ARBOR PHARMACEUTICALS, LLC-US-2023ARB004007

PATIENT
  Sex: Female

DRUGS (1)
  1. EVEKEO ODT [Suspect]
     Active Substance: AMPHETAMINE SULFATE
     Indication: Product used for unknown indication
     Dosage: UNK

REACTIONS (1)
  - Wrong technique in product usage process [Unknown]
